FAERS Safety Report 6386418-9 (Version None)
Quarter: 2009Q4

REPORT INFORMATION
  Report Type: 
  Country: None (occurrence: None)
  Receive Date: 20091002
  Receipt Date: 20090929
  Transmission Date: 20100525
  Serious: Yes (Other)
  Sender: FDA-Public Use
  Company Number: B0595943A

PATIENT
  Age: 60 Year
  Sex: Female

DRUGS (2)
  1. CIGANON CQ1 [Suspect]
     Indication: SMOKING CESSATION THERAPY
     Dosage: 14MG PER DAY
     Route: 062
     Dates: start: 20090918
  2. ANTIHYPERTENSIVES [Concomitant]

REACTIONS (3)
  - RETINAL HAEMORRHAGE [None]
  - TREATMENT NONCOMPLIANCE [None]
  - VITREOUS FLOATERS [None]
